FAERS Safety Report 23159897 (Version 2)
Quarter: 2023Q4

REPORT INFORMATION
  Report Type: Spontaneous
  Country: US (occurrence: US)
  Receive Date: 20231108
  Receipt Date: 20231207
  Transmission Date: 20240110
  Serious: No
  Sender: FDA-Public Use
  Company Number: US-VERTEX PHARMACEUTICALS-2023-016519

PATIENT

DRUGS (1)
  1. SYMDEKO [Suspect]
     Active Substance: IVACAFTOR\TEZACAFTOR
     Indication: Cystic fibrosis
     Dosage: TEZACAFTOR/IVACAFTOR AND IVACAFTOR
     Route: 048
     Dates: start: 2019

REACTIONS (6)
  - Cough [Unknown]
  - Pulmonary function test decreased [Unknown]
  - Stress urinary incontinence [Unknown]
  - Infective pulmonary exacerbation of cystic fibrosis [Unknown]
  - Pain [Unknown]
  - Viral infection [Not Recovered/Not Resolved]

NARRATIVE: CASE EVENT DATE: 20230101
